FAERS Safety Report 9429191 (Version 4)
Quarter: 2013Q3

REPORT INFORMATION
  Report Type: Spontaneous
  Country: DE (occurrence: DE)
  Receive Date: 20130730
  Receipt Date: 20130813
  Transmission Date: 20140515
  Serious: Yes (Life-Threatening, Hospitalization, Other)
  Sender: FDA-Public Use
  Company Number: DE-JNJFOC-20130618329

PATIENT
  Age: 79 Year
  Sex: Male

DRUGS (1)
  1. ZYTIGA [Suspect]
     Indication: PROSTATE CANCER METASTATIC
     Route: 048

REACTIONS (11)
  - Hypokalaemia [Recovering/Resolving]
  - Hyperuricaemia [Unknown]
  - Infarction [Recovering/Resolving]
  - Cardiac failure [Unknown]
  - Anaemia [Unknown]
  - Pleural effusion [Unknown]
  - Hypothyroidism [Unknown]
  - Hypertension [Unknown]
  - General physical health deterioration [Unknown]
  - Prostatic specific antigen increased [Unknown]
  - Urinary tract infection [Unknown]
